FAERS Safety Report 20688541 (Version 2)
Quarter: 2022Q3

REPORT INFORMATION
  Report Type: Report from Study
  Country: US (occurrence: US)
  Receive Date: 20220408
  Receipt Date: 20220725
  Transmission Date: 20221027
  Serious: Yes (Other)
  Sender: FDA-Public Use
  Company Number: US-BRISTOL-MYERS SQUIBB COMPANY-2022-015754

PATIENT
  Age: 75 Year
  Sex: Male
  Weight: 102 kg

DRUGS (1)
  1. REVLIMID [Suspect]
     Active Substance: LENALIDOMIDE
     Indication: Plasma cell myeloma
     Dosage: 28/BTL, (EXPIRY DATE: 30-SEP-2024)
     Route: 048
     Dates: start: 201911

REACTIONS (2)
  - Haemorrhoidal haemorrhage [Unknown]
  - Platelet count decreased [Unknown]
